FAERS Safety Report 4791729-4 (Version None)
Quarter: 2005Q4

REPORT INFORMATION
  Report Type: 
  Country: None (occurrence: None)
  Receive Date: 20051005
  Receipt Date: 20050901
  Transmission Date: 20060501
  Serious: Yes (Hospitalization)
  Sender: FDA-Public Use
  Company Number: 2005-01871

PATIENT
  Age: 38 Year
  Sex: Male
  Weight: 91 kg

DRUGS (1)
  1. VELCADE [Suspect]
     Indication: WALDENSTROM'S MACROGLOBULINAEMIA
     Dosage: 1.50 MG/M2, IV BOLUS
     Route: 040
     Dates: start: 20050606, end: 20050815

REACTIONS (11)
  - CHEST PAIN [None]
  - CONFUSIONAL STATE [None]
  - COORDINATION ABNORMAL [None]
  - DIPLOPIA [None]
  - DIZZINESS [None]
  - DYSPHASIA [None]
  - INNER EAR DISORDER [None]
  - NAUSEA [None]
  - NYSTAGMUS [None]
  - TINNITUS [None]
  - VERTIGO [None]
